FAERS Safety Report 5073238-0 (Version None)
Quarter: 2006Q3

REPORT INFORMATION
  Report Type: 
  Country: None (occurrence: None)
  Receive Date: 20060710
  Receipt Date: 20060227
  Transmission Date: 20061208
  Serious: Yes (Hospitalization)
  Sender: FDA-Public Use
  Company Number: US-2006-004196

PATIENT
  Age: 62 Year
  Sex: Male

DRUGS (1)
  1. ULTRAVIST 300 [Suspect]
     Indication: COMPUTERISED TOMOGRAM ABDOMEN
     Dosage: 100 ML, 1 DOSE, INTRAVENOUS
     Route: 042
     Dates: start: 20060222, end: 20060222

REACTIONS (4)
  - COUGH [None]
  - DYSPNOEA [None]
  - SNEEZING [None]
  - THROAT TIGHTNESS [None]
